FAERS Safety Report 13688001 (Version 4)
Quarter: 2019Q4

REPORT INFORMATION
  Report Type: Report from Study
  Country: US (occurrence: US)
  Receive Date: 20170626
  Receipt Date: 20191129
  Transmission Date: 20200122
  Serious: Yes (Hospitalization)
  Sender: FDA-Public Use
  Company Number: US-UCBSA-2017006885

PATIENT
  Sex: Male

DRUGS (4)
  1. LACOSAMIDE. [Suspect]
     Active Substance: LACOSAMIDE
     Dosage: 250 MG IN ANTE MERIDIEM AND 300 MG IN  POST MERIDIEM, 2X/DAY (BID)
     Route: 048
     Dates: end: 20190217
  2. LACOSAMIDE. [Suspect]
     Active Substance: LACOSAMIDE
     Indication: PARTIAL SEIZURES
     Dosage: LACOSAMIDE 150 MG (600 MG) AND 1 TABLET OF LACOSAMIDE 50 MG (650 MG TOTAL), 2X/DAY (BID)
  3. LACOSAMIDE. [Suspect]
     Active Substance: LACOSAMIDE
     Indication: EPILEPSY
     Dosage: 150 MG, 1 TABLET TWICE A DAY AND 50 MG 1 TABLET EVERY AFTERNOON OR EVENING (QPM)
     Route: 048
     Dates: start: 20180328
  4. BRIVIACT [Suspect]
     Active Substance: BRIVARACETAM
     Indication: PRODUCT USED FOR UNKNOWN INDICATION
     Dosage: 10MG, 25 MG, 50MG TABLETS (STRENGTH))

REACTIONS (5)
  - Post-traumatic neck syndrome [Not Recovered/Not Resolved]
  - Fall [Not Recovered/Not Resolved]
  - Product dose omission [Unknown]
  - Overdose [Unknown]
  - Off label use [Unknown]

NARRATIVE: CASE EVENT DATE: 2019
